FAERS Safety Report 26192663 (Version 1)
Quarter: 2025Q4

REPORT INFORMATION
  Report Type: Spontaneous
  Country: EU (occurrence: EU)
  Receive Date: 20251223
  Receipt Date: 20251223
  Transmission Date: 20260117
  Serious: Yes (Life-Threatening)
  Sender: FRESENIUS KABI
  Company Number: None

PATIENT
  Age: 65 Year
  Sex: Female
  Weight: 75 kg

DRUGS (4)
  1. ACETAMINOPHEN [Suspect]
     Active Substance: ACETAMINOPHEN
     Indication: Pyrexia
     Dosage: FOA: INTRAVENOUS INFUSION
     Route: 042
     Dates: start: 20231021
  2. ACARD [Concomitant]
     Indication: Product used for unknown indication
     Dosage: THERAPY ONGOING
     Route: 048
  3. ENOXAPARIN SODIUM [Concomitant]
     Active Substance: ENOXAPARIN SODIUM
     Indication: Product used for unknown indication
     Dosage: 0.6; THERAPY ONGOING
     Route: 058
  4. ELECTROLYTES NOS [Concomitant]
     Active Substance: ELECTROLYTES NOS
     Indication: Product used for unknown indication
     Dosage: THERAPY ONGOING
     Route: 042

REACTIONS (3)
  - Rash [Recovering/Resolving]
  - Blood pressure decreased [Recovering/Resolving]
  - Shock symptom [Recovering/Resolving]

NARRATIVE: CASE EVENT DATE: 20231021
